FAERS Safety Report 4320371-4 (Version None)
Quarter: 2004Q1

REPORT INFORMATION
  Report Type: 
  Country: None (occurrence: None)
  Receive Date: 20040317
  Receipt Date: 20040303
  Transmission Date: 20041129
  Serious: Yes (Life-Threatening)
  Sender: FDA-Public Use
  Company Number: 2004AP00086

PATIENT
  Age: 76 Year
  Sex: Male

DRUGS (12)
  1. IRESSA [Suspect]
     Indication: LUNG ADENOCARCINOMA
     Dosage: 250 MG DAILY PO
     Route: 048
     Dates: start: 20030802, end: 20030811
  2. IRESSA [Suspect]
     Indication: NON-SMALL CELL LUNG CANCER
     Dosage: 250 MG DAILY PO
     Route: 048
     Dates: start: 20030802, end: 20030811
  3. RINDERON [Suspect]
     Indication: TUMOUR ASSOCIATED FEVER
     Dosage: 4 MG DAILY
     Dates: start: 20030804, end: 20030809
  4. RINDERON [Suspect]
     Indication: TUMOUR ASSOCIATED FEVER
     Dosage: 8 MG DAILY
     Dates: start: 20030810, end: 20030812
  5. ACECOL [Concomitant]
  6. BASEN [Concomitant]
  7. ADALAT [Concomitant]
  8. NAIXAN [Concomitant]
  9. CYTOTEC [Concomitant]
  10. GASTER [Concomitant]
  11. FERROGRADUMET [Concomitant]
  12. GEMZAR [Concomitant]

REACTIONS (6)
  - DEHYDRATION [None]
  - GENERAL PHYSICAL HEALTH DETERIORATION [None]
  - HEPATIC FUNCTION ABNORMAL [None]
  - LUNG ADENOCARCINOMA [None]
  - MALIGNANT NEOPLASM PROGRESSION [None]
  - RENAL IMPAIRMENT [None]
